FAERS Safety Report 7369584-8 (Version None)
Quarter: 2011Q1

REPORT INFORMATION
  Report Type: 
  Country: None (occurrence: None)
  Receive Date: 20110323
  Receipt Date: 20110321
  Transmission Date: 20110831
  Serious: Yes (Other)
  Sender: FDA-Public Use
  Company Number: US-PFIZER INC-2011062124

PATIENT
  Sex: Female

DRUGS (1)
  1. ARTHROTEC [Suspect]
     Indication: ARTHRITIS
     Dosage: 75 MG, DAILY
     Route: 048

REACTIONS (4)
  - SPINAL FUSION SURGERY [None]
  - DYSPHAGIA [None]
  - SCAR [None]
  - CHOKING [None]
